FAERS Safety Report 6682749-3 (Version None)
Quarter: 2010Q2

REPORT INFORMATION
  Report Type: 
  Country: None (occurrence: None)
  Receive Date: 20100415
  Receipt Date: 20100414
  Transmission Date: 20101027
  Serious: Yes (Hospitalization)
  Sender: FDA-Public Use
  Company Number: PE-ELI_LILLY_AND_COMPANY-PE201003000833

PATIENT
  Sex: Female
  Weight: 53 kg

DRUGS (5)
  1. GEMCITABINE HCL [Suspect]
     Indication: BREAST CANCER METASTATIC
     Dosage: 1000 MG/M2, OTHER
     Route: 042
     Dates: start: 20100202
  2. GEMCITABINE HCL [Suspect]
     Dosage: UNK, OTHER
     Route: 042
  3. VINFLUNINE [Suspect]
     Indication: BREAST CANCER METASTATIC
     Dosage: UNK, OTHER
     Route: 042
     Dates: start: 20100202
  4. VINFLUNINE [Suspect]
     Dosage: UNK, OTHER
     Route: 042
  5. RANITIDINE HCL [Concomitant]
     Dates: start: 20100202

REACTIONS (2)
  - CONSTIPATION [None]
  - ILEUS [None]
